FAERS Safety Report 4711289-3 (Version None)
Quarter: 2005Q3

REPORT INFORMATION
  Report Type: 
  Country: None (occurrence: None)
  Receive Date: 20050711
  Receipt Date: 20050628
  Transmission Date: 20060218
  Serious: Yes (Other)
  Sender: FDA-Public Use
  Company Number: 2005092465

PATIENT
  Sex: Female

DRUGS (1)
  1. COOL MINT LISTERINE (MENTHYOL, METHYL SALICYLATE, EUCALYPTOL, THYMOL) [Suspect]
     Dosage: UNSPECIFIED AMOUNT ONCE, OPHTHALMIC
     Route: 047
     Dates: start: 20050509, end: 20050509

REACTIONS (2)
  - ACCIDENTAL EXPOSURE [None]
  - CORNEAL ABRASION [None]
